FAERS Safety Report 13811492 (Version 1)
Quarter: 2017Q3

REPORT INFORMATION
  Report Type: Spontaneous
  Country: US (occurrence: US)
  Receive Date: 20170728
  Receipt Date: 20170728
  Transmission Date: 20171127
  Serious: No
  Sender: FDA-Public Use
  Company Number: US-ROCHE-784131

PATIENT
  Sex: Female
  Weight: 54.4 kg

DRUGS (1)
  1. BONVIVA [Suspect]
     Active Substance: IBANDRONATE SODIUM
     Indication: BONE LOSS
     Route: 048

REACTIONS (1)
  - Abdominal discomfort [Unknown]
